FAERS Safety Report 20251042 (Version 1)
Quarter: 2021Q4

REPORT INFORMATION
  Report Type: Spontaneous
  Country: US (occurrence: US)
  Receive Date: 20211229
  Receipt Date: 20211229
  Transmission Date: 20220303
  Serious: No
  Sender: FDA-Public Use
  Company Number: US-BoehringerIngelheim-2021-BI-146006

PATIENT
  Sex: Female

DRUGS (8)
  1. SPIRIVA RESPIMAT [Suspect]
     Active Substance: TIOTROPIUM BROMIDE
     Indication: Asthma
     Dosage: 2 PUFFS QD
     Dates: start: 202109, end: 202109
  2. HYDROXYCHLOROQUINE [Concomitant]
     Active Substance: HYDROXYCHLOROQUINE
     Indication: Urticaria
     Dosage: 100 MG PO BID
     Route: 048
  3. MONTELUKAST [Concomitant]
     Active Substance: MONTELUKAST SODIUM
     Indication: Urticaria
     Dosage: 10 MG PO QD
     Route: 048
  4. FAMOTIDINE [Concomitant]
     Active Substance: FAMOTIDINE
     Indication: Urticaria
     Dosage: 20 MG PO QD
     Route: 048
  5. LEVOCETIRIZINE [Concomitant]
     Active Substance: LEVOCETIRIZINE
     Indication: Urticaria
     Dosage: 10 MG PO QD
     Route: 048
  6. XOLAIR [Concomitant]
     Active Substance: OMALIZUMAB
     Indication: Urticaria
  7. AMLODIPINE [Concomitant]
     Active Substance: AMLODIPINE BESYLATE
     Indication: Hypertension
     Dosage: 2.5 MG PO QD
     Route: 048
  8. CARVEDILOL [Concomitant]
     Active Substance: CARVEDILOL
     Indication: Blood pressure measurement

REACTIONS (3)
  - Headache [Recovered/Resolved]
  - Asthenopia [Not Recovered/Not Resolved]
  - Iridocyclitis [Recovered/Resolved]

NARRATIVE: CASE EVENT DATE: 20210901
